FAERS Safety Report 5833301-0 (Version None)
Quarter: 2008Q3

REPORT INFORMATION
  Report Type: 
  Country: None (occurrence: None)
  Receive Date: 20080805
  Receipt Date: 20080726
  Transmission Date: 20090109
  Serious: Yes (Death, Other)
  Sender: FDA-Public Use
  Company Number: US-BAYER-200823546GPV

PATIENT

DRUGS (3)
  1. SORAFENIB [Suspect]
     Indication: GASTRIC CANCER
     Route: 048
  2. DOCETAXEL [Suspect]
     Indication: GASTRIC CANCER
     Route: 042
  3. CISPLATIN [Suspect]
     Indication: GASTRIC CANCER
     Route: 042

REACTIONS (5)
  - DEHYDRATION [None]
  - DIARRHOEA [None]
  - GASTROINTESTINAL HAEMORRHAGE [None]
  - INFECTION [None]
  - PALMAR-PLANTAR ERYTHRODYSAESTHESIA SYNDROME [None]
